FAERS Safety Report 6399377-X (Version None)
Quarter: 2009Q4

REPORT INFORMATION
  Report Type: 
  Country: None (occurrence: None)
  Receive Date: 20091014
  Receipt Date: 20091004
  Transmission Date: 20100525
  Serious: Yes (Hospitalization)
  Sender: FDA-Public Use
  Company Number: NZ-JNJFOC-20090801082

PATIENT
  Sex: Female
  Weight: 55 kg

DRUGS (46)
  1. GOLIMUMAB [Suspect]
     Route: 058
  2. GOLIMUMAB [Suspect]
     Route: 058
  3. GOLIMUMAB [Suspect]
     Route: 058
  4. GOLIMUMAB [Suspect]
     Route: 058
  5. GOLIMUMAB [Suspect]
     Route: 058
  6. GOLIMUMAB [Suspect]
     Route: 058
  7. GOLIMUMAB [Suspect]
     Route: 058
  8. GOLIMUMAB [Suspect]
     Route: 058
  9. GOLIMUMAB [Suspect]
     Route: 058
  10. GOLIMUMAB [Suspect]
     Route: 058
  11. GOLIMUMAB [Suspect]
     Route: 058
  12. GOLIMUMAB [Suspect]
     Route: 058
  13. GOLIMUMAB [Suspect]
     Route: 058
  14. GOLIMUMAB [Suspect]
     Route: 058
  15. GOLIMUMAB [Suspect]
     Route: 058
  16. GOLIMUMAB [Suspect]
     Route: 058
  17. GOLIMUMAB [Suspect]
     Route: 058
  18. GOLIMUMAB [Suspect]
     Route: 058
  19. GOLIMUMAB [Suspect]
     Route: 058
  20. GOLIMUMAB [Suspect]
     Route: 058
  21. GOLIMUMAB [Suspect]
     Route: 058
  22. GOLIMUMAB [Suspect]
     Route: 058
  23. GOLIMUMAB [Suspect]
     Route: 058
  24. GOLIMUMAB [Suspect]
     Route: 058
  25. GOLIMUMAB [Suspect]
     Route: 058
  26. GOLIMUMAB [Suspect]
     Route: 058
  27. GOLIMUMAB [Suspect]
     Route: 058
  28. GOLIMUMAB [Suspect]
     Route: 058
  29. GOLIMUMAB [Suspect]
     Route: 058
  30. GOLIMUMAB [Suspect]
     Route: 058
  31. GOLIMUMAB [Suspect]
     Route: 058
  32. GOLIMUMAB [Suspect]
     Route: 058
  33. GOLIMUMAB [Suspect]
     Indication: RHEUMATOID ARTHRITIS
     Route: 058
  34. PLACEBO [Suspect]
     Route: 058
  35. PLACEBO [Suspect]
     Route: 058
  36. PLACEBO [Suspect]
     Route: 058
  37. PLACEBO [Suspect]
     Route: 058
  38. PLACEBO [Suspect]
     Route: 058
  39. PLACEBO [Suspect]
     Indication: RHEUMATOID ARTHRITIS
     Route: 058
  40. TEMAZEPAM [Concomitant]
     Route: 048
  41. COMBIVENT [Concomitant]
     Route: 055
  42. METHOTREXATE [Concomitant]
     Route: 048
  43. FOLIC ACID [Concomitant]
     Route: 048
  44. LEVOTHYROXINE SODIUM [Concomitant]
     Route: 048
  45. VOLTAREN [Concomitant]
     Route: 048
  46. OMEPRAZOLE [Concomitant]
     Route: 048

REACTIONS (2)
  - INTERVERTEBRAL DISCITIS [None]
  - SOFT TISSUE INFECTION [None]
